FAERS Safety Report 12520092 (Version 1)
Quarter: 2016Q2

REPORT INFORMATION
  Report Type: Report from Study
  Country: JP (occurrence: JP)
  Receive Date: 20160630
  Receipt Date: 20160630
  Transmission Date: 20160815
  Serious: Yes (Hospitalization, Disabling)
  Sender: FDA-Public Use
  Company Number: JP-JNJFOC-20150105298

PATIENT
  Age: 74 Year
  Sex: Male
  Weight: 74.83 kg

DRUGS (8)
  1. XARELTO [Suspect]
     Active Substance: RIVAROXABAN
     Indication: ATRIAL FIBRILLATION
     Route: 048
     Dates: start: 20130509, end: 20130711
  2. WARFARIN POTASSIUM [Suspect]
     Active Substance: WARFARIN POTASSIUM
     Indication: EMBOLIC STROKE
     Route: 050
     Dates: start: 20130724
  3. CRAVIT [Suspect]
     Active Substance: LEVOFLOXACIN
     Indication: URINARY TRACT INFECTION
     Route: 050
     Dates: start: 20130808, end: 20130816
  4. PAROXETINE HYDROCHLORIDE. [Concomitant]
     Active Substance: PAROXETINE HYDROCHLORIDE
     Route: 048
     Dates: end: 20130711
  5. PARIET [Concomitant]
     Active Substance: RABEPRAZOLE SODIUM
     Route: 048
     Dates: end: 20130711
  6. XARELTO [Suspect]
     Active Substance: RIVAROXABAN
     Indication: PULMONARY EMBOLISM
     Route: 048
     Dates: start: 20130509, end: 20130711
  7. XARELTO [Suspect]
     Active Substance: RIVAROXABAN
     Indication: CEREBROVASCULAR ACCIDENT PROPHYLAXIS
     Route: 048
     Dates: start: 20130509, end: 20130711
  8. LAMISIL [Concomitant]
     Active Substance: TERBINAFINE HYDROCHLORIDE
     Route: 048
     Dates: end: 20130711

REACTIONS (4)
  - Embolic stroke [Recovered/Resolved with Sequelae]
  - Urinary tract infection [Recovering/Resolving]
  - Thalamus haemorrhage [Recovered/Resolved with Sequelae]
  - Coagulation test abnormal [Not Recovered/Not Resolved]

NARRATIVE: CASE EVENT DATE: 20130711
